FAERS Safety Report 7403186-X (Version None)
Quarter: 2011Q2

REPORT INFORMATION
  Report Type: 
  Country: None (occurrence: None)
  Receive Date: 20110408
  Receipt Date: 20110328
  Transmission Date: 20111010
  Serious: No
  Sender: FDA-Public Use
  Company Number: US-JNJFOC-20110400022

PATIENT
  Sex: Female
  Weight: 71.67 kg

DRUGS (3)
  1. FENTANYL-100 [Suspect]
     Indication: PRODUCT USED FOR UNKNOWN INDICATION
     Route: 062
  2. MANY OTHER UNSPECIFIED MEDICATIONS [Concomitant]
     Route: 065
  3. FENTANYL-100 [Suspect]
     Indication: BACK PAIN
     Route: 062

REACTIONS (2)
  - WRONG TECHNIQUE IN DRUG USAGE PROCESS [None]
  - PRODUCT ADHESION ISSUE [None]
